FAERS Safety Report 4439088-0 (Version None)
Quarter: 2004Q3

REPORT INFORMATION
  Report Type: 
  Country: None (occurrence: None)
  Receive Date: 20040830
  Receipt Date: 20040818
  Transmission Date: 20050211
  Serious: Yes (Hospitalization)
  Sender: FDA-Public Use
  Company Number: USA-2004-0015268

PATIENT
  Age: 47 Year
  Sex: Female

DRUGS (2)
  1. OXYCONTIN [Suspect]
     Indication: CANCER PAIN
     Dosage: 20 MG, ORAL
     Route: 048
     Dates: start: 20030421, end: 20040428
  2. MORPHINE SULFATE [Suspect]
     Indication: CANCER PAIN
     Dosage: 20 MG, ORAL
     Route: 048
     Dates: start: 20040417, end: 20040421

REACTIONS (6)
  - DRUG HYPERSENSITIVITY [None]
  - FACE OEDEMA [None]
  - LOCALISED OEDEMA [None]
  - OEDEMA [None]
  - PRURITUS [None]
  - URTICARIA [None]
